FAERS Safety Report 26148616 (Version 1)
Quarter: 2025Q4

REPORT INFORMATION
  Report Type: Spontaneous
  Country: US (occurrence: US)
  Receive Date: 20251212
  Receipt Date: 20251212
  Transmission Date: 20260117
  Serious: Yes (Life-Threatening, Other)
  Sender: TEVA
  Company Number: US-TEVA-VS-3401609

PATIENT
  Age: 50 Year
  Sex: Female

DRUGS (1)
  1. VESTURA [Suspect]
     Active Substance: DROSPIRENONE\ETHINYL ESTRADIOL
     Indication: Oral contraception
     Dosage: DROSPIREPONE 3 MG / ETHINYL ESTRADIOL 0.02 M
     Route: 065
     Dates: start: 20250131, end: 20250409

REACTIONS (1)
  - Pulmonary embolism [Unknown]

NARRATIVE: CASE EVENT DATE: 20250410
